FAERS Safety Report 6875393-6 (Version None)
Quarter: 2010Q3

REPORT INFORMATION
  Report Type: 
  Country: None (occurrence: None)
  Receive Date: 20100727
  Receipt Date: 20100719
  Transmission Date: 20110219
  Serious: Yes (Hospitalization)
  Sender: FDA-Public Use
  Company Number: HOAFF20345

PATIENT
  Age: 8 Year
  Sex: Male

DRUGS (2)
  1. LOPERAMIDE [Suspect]
     Indication: DIARRHOEA
  2. BORIC ACID [Concomitant]
     Indication: CONJUNCTIVITIS

REACTIONS (7)
  - CONDITION AGGRAVATED [None]
  - CONJUNCTIVITIS [None]
  - ERYTHEMA [None]
  - ORAL MUCOSAL ERUPTION [None]
  - PYREXIA [None]
  - SEPSIS [None]
  - TOXIC EPIDERMAL NECROLYSIS [None]
